FAERS Safety Report 8186849 (Version 2)
Quarter: 2013Q1

REPORT INFORMATION
  Report Type: Spontaneous
  Country: FR (occurrence: FR)
  Receive Date: 20111018
  Receipt Date: 20130123
  Transmission Date: 20140127
  Serious: Yes (Other)
  Sender: FDA-Public Use
  Company Number: PHHY2011FR89617

PATIENT
  Age: 11 Year
  Sex: Female

DRUGS (2)
  1. VINCRISTINE [Suspect]
     Indication: T-CELL TYPE ACUTE LEUKAEMIA
  2. PIPERACILLIN+TAZOBACTAM [Interacting]
     Indication: FEBRILE NEUTROPENIA

REACTIONS (5)
  - Intestinal obstruction [Unknown]
  - Cholestasis [Unknown]
  - Abdominal pain [Unknown]
  - Autonomic neuropathy [Unknown]
  - Drug interaction [Unknown]
